FAERS Safety Report 23141580 (Version 8)
Quarter: 2023Q4

REPORT INFORMATION
  Report Type: Report from Study
  Country: IE (occurrence: IE)
  Receive Date: 20231103
  Receipt Date: 20231228
  Transmission Date: 20240109
  Serious: Yes (Hospitalization, Other)
  Sender: FDA-Public Use
  Company Number: IE-AMGEN-IRLSL2023140864

PATIENT
  Age: 71 Year
  Sex: Male

DRUGS (23)
  1. KYPROLIS [Suspect]
     Active Substance: CARFILZOMIB
     Indication: Plasma cell myeloma
     Dosage: 52 MILLIGRAM (AS PER PRESCRIPTION)
     Route: 042
     Dates: start: 20230714
  2. KYPROLIS [Suspect]
     Active Substance: CARFILZOMIB
     Dosage: 52 MILLIGRAM (AS PER PRESCRIPTION)
     Route: 042
     Dates: start: 20230721
  3. KYPROLIS [Suspect]
     Active Substance: CARFILZOMIB
     Dosage: 52 MILLIGRAM (AS PER PRESCRIPTION)
     Route: 042
     Dates: start: 20230804
  4. KYPROLIS [Suspect]
     Active Substance: CARFILZOMIB
     Dosage: 52 MILLIGRAM (AS PER PRESCRIPTION)
     Route: 042
     Dates: start: 20230901
  5. KYPROLIS [Suspect]
     Active Substance: CARFILZOMIB
     Dosage: 52 MILLIGRAM (AS PER PRESCRIPTION)
     Route: 042
     Dates: start: 20230908
  6. KYPROLIS [Suspect]
     Active Substance: CARFILZOMIB
     Dosage: 52 MILLIGRAM (AS PER PRESCRIPTION)
     Route: 042
     Dates: start: 20230915
  7. KYPROLIS [Suspect]
     Active Substance: CARFILZOMIB
     Dosage: 52 MILLIGRAM (AS PER PRESCRIPTION)
     Route: 042
     Dates: start: 20231006
  8. KYPROLIS [Suspect]
     Active Substance: CARFILZOMIB
     Dosage: 52 MILLIGRAM (AS PER PRESCRIPTION)
     Route: 042
     Dates: start: 20231013
  9. KYPROLIS [Suspect]
     Active Substance: CARFILZOMIB
     Dosage: 52 MILLIGRAM (AS PER PRESCRIPTION)
     Route: 042
     Dates: start: 20231103
  10. KYPROLIS [Suspect]
     Active Substance: CARFILZOMIB
     Dosage: 52 MILLIGRAM (AS PER PRESCRIPTION)
     Route: 042
     Dates: start: 20231110
  11. KYPROLIS [Suspect]
     Active Substance: CARFILZOMIB
     Dosage: 52 MILLIGRAM (AS PER PRESCRIPTION)
     Route: 042
     Dates: start: 20231201, end: 2023
  12. NEULASTA [Concomitant]
     Active Substance: PEGFILGRASTIM
     Indication: Product used for unknown indication
     Dosage: 6 MILLIGRAM, QMO
     Route: 050
  13. FUROSEMIDE [Concomitant]
     Active Substance: FUROSEMIDE
     Indication: Joint swelling
     Dosage: 40 MILLIGRAM, BID
     Route: 050
     Dates: start: 2023
  14. FUROSEMIDE [Concomitant]
     Active Substance: FUROSEMIDE
     Indication: Urine analysis abnormal
     Dosage: 40 MILLIGRAM, QD
     Route: 050
     Dates: start: 2023
  15. VALACYCLOVIR [Concomitant]
     Active Substance: VALACYCLOVIR HYDROCHLORIDE
     Dosage: 500 MILLIGRAM, QD
     Route: 065
  16. SULFAMETHOXAZOLE\TRIMETHOPRIM [Concomitant]
     Active Substance: SULFAMETHOXAZOLE\TRIMETHOPRIM
     Dosage: 960 MILLIGRAM, 3 TIMES/WK
     Route: 065
  17. TRAMADOL [Concomitant]
     Active Substance: TRAMADOL\TRAMADOL HYDROCHLORIDE
     Dosage: 50 MILLIGRAM
     Route: 065
  18. DEXAMETHASONE [Concomitant]
     Active Substance: DEXAMETHASONE
     Dosage: 20 MILLIGRAM, AS PER CHEMO PRESCRIPTION
     Route: 050
  19. ASPIRIN [Concomitant]
     Active Substance: ASPIRIN
     Dosage: 75 MILLIGRAM, QD
     Route: 050
  20. OXYCONTIN [Concomitant]
     Active Substance: OXYCODONE HYDROCHLORIDE
     Dosage: 5 MILLIGRAM, NIGHT
     Route: 050
  21. OXYCODONE HYDROCHLORIDE [Concomitant]
     Active Substance: OXYCODONE HYDROCHLORIDE
     Dosage: 5 MILLIGRAM, AS NECESSARY (PRN (AS REQUIRED))
     Route: 050
  22. PREGABALIN [Concomitant]
     Active Substance: PREGABALIN
     Dosage: 150 MILLIGRAM, BID
     Route: 050
  23. POMALIDOMIDE [Concomitant]
     Active Substance: POMALIDOMIDE
     Dosage: 4 MILLIGRAM, QD
     Route: 050

REACTIONS (10)
  - Fluid retention [Unknown]
  - Cellulitis [Recovered/Resolved]
  - Plasma cell myeloma [Unknown]
  - Joint swelling [Not Recovered/Not Resolved]
  - Dyspnoea exertional [Recovered/Resolved]
  - Inappropriate schedule of product administration [Unknown]
  - Neutrophil count decreased [Unknown]
  - Peripheral swelling [Not Recovered/Not Resolved]
  - Micturition frequency decreased [Unknown]
  - SARS-CoV-2 test positive [Unknown]

NARRATIVE: CASE EVENT DATE: 20230101
